FAERS Safety Report 15852652 (Version 1)
Quarter: 2019Q1

REPORT INFORMATION
  Report Type: Spontaneous
  Country: CA (occurrence: CA)
  Receive Date: 20190122
  Receipt Date: 20190122
  Transmission Date: 20190417
  Serious: Yes (Other)
  Sender: FDA-Public Use
  Company Number: CA-AUROBINDO-AUR-APL-2019-002795

PATIENT
  Age: 62 Year
  Sex: Male

DRUGS (1)
  1. LIDOCAINE 2 % W/V [Suspect]
     Active Substance: LIDOCAINE
     Indication: ANAESTHESIA
     Dosage: UNK, 2%, DELIVERED BY A 25-GAUGE 1.5-IN NEEDLE
     Route: 065

REACTIONS (4)
  - Retinal artery occlusion [Unknown]
  - Blindness [Unknown]
  - Arteriovenous fistula [Unknown]
  - Retinal vein occlusion [Unknown]
